FAERS Safety Report 9910883 (Version 2)
Quarter: 2014Q1

REPORT INFORMATION
  Report Type: Spontaneous
  Country: CA (occurrence: CA)
  Receive Date: 20140219
  Receipt Date: 20140304
  Transmission Date: 20141002
  Serious: No
  Sender: FDA-Public Use
  Company Number: CA-009507513-1402CAN007033

PATIENT
  Sex: Female
  Weight: 79.5 kg

DRUGS (4)
  1. REMERON [Suspect]
     Route: 048
  2. VALPROIC ACID [Concomitant]
  3. QUETIAPINE FUMARATE [Concomitant]
  4. HALDOL [Concomitant]

REACTIONS (1)
  - No adverse event [Unknown]
